FAERS Safety Report 13869939 (Version 2)
Quarter: 2017Q3

REPORT INFORMATION
  Report Type: Spontaneous
  Country: FR (occurrence: FR)
  Receive Date: 20170815
  Receipt Date: 20170825
  Transmission Date: 20171127
  Serious: Yes (Hospitalization, Other)
  Sender: FDA-Public Use
  Company Number: FR-PFIZER INC-2017349905

PATIENT
  Age: 48 Year
  Sex: Male

DRUGS (10)
  1. SOLUPRED /00016217/ [Concomitant]
     Active Substance: PREDNISOLONE
     Indication: ASTHMA
     Dosage: UNK
     Dates: start: 20170628
  2. SOLU-MEDROL [Suspect]
     Active Substance: METHYLPREDNISOLONE SODIUM SUCCINATE
     Indication: RESPIRATORY DISORDER
     Dosage: 50 MG, SINGLE
     Route: 042
     Dates: start: 20170629, end: 20170629
  3. INCRUSE ELLIPTA [Concomitant]
     Active Substance: UMECLIDINIUM BROMIDE
     Indication: ASTHMA
     Dosage: UNK
     Dates: start: 20170628
  4. BRICANYL [Suspect]
     Active Substance: TERBUTALINE SULFATE
     Indication: RESPIRATORY DISORDER
     Dosage: UNK
     Route: 055
     Dates: start: 20170629
  5. ALVESCO [Concomitant]
     Active Substance: CICLESONIDE
     Indication: ASTHMA
     Dosage: UNK
     Dates: start: 20170628
  6. ATROVENT [Suspect]
     Active Substance: IPRATROPIUM BROMIDE
     Indication: RESPIRATORY DISORDER
     Dosage: UNK
     Route: 055
     Dates: start: 20170629
  7. STRIVERDI RESPIMAT [Concomitant]
     Active Substance: OLODATEROL HYDROCHLORIDE
     Indication: ASTHMA
     Dosage: UNK
     Dates: start: 20170628
  8. AIROMIR /00139502/ [Concomitant]
     Indication: ASTHMA
     Dosage: UNK
     Dates: start: 20170628
  9. PYOSTACINE [Concomitant]
     Active Substance: PRISTINAMYCIN
     Indication: ASTHMA
     Dosage: UNK
     Dates: start: 20170628
  10. MAGNESIUM SULFATE. [Suspect]
     Active Substance: MAGNESIUM SULFATE
     Indication: RESPIRATORY DISORDER
     Dosage: UNK
     Route: 055
     Dates: start: 20170629

REACTIONS (2)
  - Hyperlactacidaemia [Recovered/Resolved]
  - Metabolic acidosis [Recovered/Resolved]

NARRATIVE: CASE EVENT DATE: 20170629
